FAERS Safety Report 5673641-1 (Version None)
Quarter: 2008Q1

REPORT INFORMATION
  Report Type: 
  Country: None (occurrence: None)
  Receive Date: 20080319
  Receipt Date: 20080311
  Transmission Date: 20080703
  Serious: Yes (Other)
  Sender: FDA-Public Use
  Company Number: ES-GILEAD-2008-0015501

PATIENT
  Sex: Female
  Weight: 59.8 kg

DRUGS (1)
  1. VIREAD [Suspect]
     Indication: HIV INFECTION
     Route: 048
     Dates: start: 20030303

REACTIONS (4)
  - BONE PAIN [None]
  - OSTEOMALACIA [None]
  - RENAL FAILURE [None]
  - RENAL TUBULAR ACIDOSIS [None]
